FAERS Safety Report 14255407 (Version 2)
Quarter: 2017Q4

REPORT INFORMATION
  Report Type: Spontaneous
  Country: JP (occurrence: JP)
  Receive Date: 20171206
  Receipt Date: 20171208
  Transmission Date: 20180321
  Serious: Yes (Death, Other)
  Sender: FDA-Public Use
  Company Number: JP-BRISTOL-MYERS SQUIBB COMPANY-BMS-2017-109257

PATIENT
  Age: 10 Decade
  Sex: Female

DRUGS (1)
  1. ELIQUIS [Suspect]
     Active Substance: APIXABAN
     Indication: CEREBROVASCULAR ACCIDENT PROPHYLAXIS
     Dosage: UNK
     Route: 048

REACTIONS (7)
  - Renal impairment [Unknown]
  - Colitis ischaemic [Unknown]
  - Melaena [Fatal]
  - Respiratory tract infection [Unknown]
  - General physical health deterioration [Unknown]
  - Blood pressure decreased [Unknown]
  - Decubitus ulcer [Unknown]

NARRATIVE: CASE EVENT DATE: 201711
